FAERS Safety Report 8056219-4 (Version None)
Quarter: 2012Q1

REPORT INFORMATION
  Report Type: 
  Country: None (occurrence: None)
  Receive Date: 20120119
  Receipt Date: 20111229
  Transmission Date: 20120608
  Serious: Yes (Other)
  Sender: FDA-Public Use
  Company Number: PHHY2011AU112959

PATIENT
  Sex: Female

DRUGS (2)
  1. FLUCONAZOLE [Suspect]
     Route: 048
  2. METOPROLOL TARTRATE [Interacting]
     Route: 048

REACTIONS (4)
  - MALAISE [None]
  - HYPOTENSION [None]
  - FATIGUE [None]
  - DRUG INTERACTION [None]
